FAERS Safety Report 5699151-3 (Version None)
Quarter: 2008Q2

REPORT INFORMATION
  Report Type: 
  Country: None (occurrence: None)
  Receive Date: 20080407
  Receipt Date: 20080407
  Transmission Date: 20081010
  Serious: No
  Sender: FDA-Public Use
  Company Number: None

PATIENT
  Age: 6 Year
  Sex: Male
  Weight: 23.587 kg

DRUGS (1)
  1. SINGULAIR [Suspect]
     Indication: ASTHMA
     Dosage: 1 PILL DAILY PO
     Route: 048
     Dates: start: 20061013, end: 20080404

REACTIONS (3)
  - AGGRESSION [None]
  - AGITATION [None]
  - ATTENTION DEFICIT/HYPERACTIVITY DISORDER [None]
